FAERS Safety Report 21489969 (Version 3)
Quarter: 2022Q4

REPORT INFORMATION
  Report Type: Report from Study
  Country: US (occurrence: US)
  Receive Date: 20221021
  Receipt Date: 20221227
  Transmission Date: 20230113
  Serious: No
  Sender: FDA-Public Use
  Company Number: US-ABBVIE-22K-163-4521213-00

PATIENT
  Sex: Female

DRUGS (3)
  1. IMBRUVICA [Suspect]
     Active Substance: IBRUTINIB
     Indication: Chronic leukaemia in remission
     Dosage: FIRST ADMIN DATE 2022
     Route: 048
  2. IMBRUVICA [Suspect]
     Active Substance: IBRUTINIB
     Indication: Chronic leukaemia in remission
     Dosage: LAST ADMIN DATE WAS 2022
     Route: 048
     Dates: start: 202204
  3. IMBRUVICA [Suspect]
     Active Substance: IBRUTINIB
     Indication: Chronic leukaemia in remission
     Dosage: DOSE REDUCED?FIRST ADMIN DATE WAS 2022
     Route: 048
     Dates: end: 202209

REACTIONS (11)
  - Muscular weakness [Unknown]
  - Therapeutic product effect incomplete [Unknown]
  - Asthenia [Unknown]
  - Muscle spasms [Recovering/Resolving]
  - Dry skin [Unknown]
  - Arthralgia [Unknown]
  - Gait disturbance [Unknown]
  - Malaise [Unknown]
  - Adverse drug reaction [Unknown]
  - Influenza [Unknown]
  - Platelet count decreased [Unknown]
